FAERS Safety Report 5210428-8 (Version None)
Quarter: 2007Q1

REPORT INFORMATION
  Report Type: 
  Country: None (occurrence: None)
  Receive Date: 20070117
  Receipt Date: 20070110
  Transmission Date: 20070707
  Serious: Yes (Life-Threatening)
  Sender: FDA-Public Use
  Company Number: JP-BAYER-200710019BYL

PATIENT
  Age: 68 Year
  Sex: Female

DRUGS (3)
  1. AVELOX [Suspect]
     Indication: SINUSITIS
     Dosage: TOTAL DAILY DOSE: 400 MG  UNIT DOSE: 400 MG
     Route: 048
     Dates: start: 20061228, end: 20061229
  2. URSO [Concomitant]
     Indication: HEPATIC FUNCTION ABNORMAL
  3. PARIET [Concomitant]
     Indication: REFLUX OESOPHAGITIS
     Route: 048

REACTIONS (3)
  - ARRHYTHMIA [None]
  - LOSS OF CONSCIOUSNESS [None]
  - SYNCOPE [None]
